FAERS Safety Report 26130347 (Version 2)
Quarter: 2025Q4

REPORT INFORMATION
  Report Type: Report from Study
  Country: EU (occurrence: EU)
  Receive Date: 20251208
  Receipt Date: 20251215
  Transmission Date: 20260118
  Serious: Yes (Hospitalization)
  Sender: DAIICHI
  Company Number: EU-DSJP-DS-2025-181073-FR

PATIENT
  Age: 81 Year
  Sex: Female

DRUGS (21)
  1. ENHERTU [Suspect]
     Active Substance: FAM-TRASTUZUMAB DERUXTECAN-NXKI
     Indication: HER2 low breast cancer
     Dosage: 5.4 MG/KG, ONCE EVERY 3 WK (3RD LINE)
     Route: 042
     Dates: start: 20251014, end: 20251014
  2. ENHERTU [Suspect]
     Active Substance: FAM-TRASTUZUMAB DERUXTECAN-NXKI
     Indication: Breast cancer metastatic
     Dosage: 4.4 MG/KG, ONCE EVERY 3 WK (3RD LINE)
     Route: 042
     Dates: start: 20251126, end: 20251126
  3. LEVOTHYROXINE [Concomitant]
     Active Substance: LEVOTHYROXINE
     Indication: Hypothyroidism
     Dosage: 80 MG, QD
     Route: 048
     Dates: start: 2015
  4. PINAVERIUM BROMIDE [Concomitant]
     Active Substance: PINAVERIUM BROMIDE
     Indication: Gastrointestinal disorder
     Dosage: 100 MG, QD
     Route: 048
     Dates: start: 2015
  5. METEOSPASMYL (ALVERINE CITRATE\DIMETHICONE) [Concomitant]
     Active Substance: ALVERINE CITRATE\DIMETHICONE
     Indication: Gastrointestinal disorder
     Dosage: 1 DOSAGE FORM, QD (DAILY)
     Route: 048
     Dates: start: 2015
  6. LAMICTAL [Concomitant]
     Active Substance: LAMOTRIGINE
     Indication: Epilepsy
     Dosage: 100 MG, BID
     Route: 048
     Dates: start: 2010
  7. KARDEGIC [Concomitant]
     Active Substance: ASPIRIN DL-LYSINE
     Indication: Thrombosis prophylaxis
     Dosage: 75 MG, QD (DAILY)
     Route: 048
     Dates: start: 2023
  8. CANDESARTAN [Concomitant]
     Active Substance: CANDESARTAN
     Indication: Hypertension
     Dosage: 16 MG, QD (DAILY)
     Route: 048
     Dates: start: 2015
  9. LIPTRUZET [Concomitant]
     Active Substance: ATORVASTATIN CALCIUM\EZETIMIBE
     Indication: Dyslipidaemia
     Dosage: 10 MG, QD
     Route: 048
     Dates: start: 2023
  10. ESOMEPRAZOLE SODIUM [Concomitant]
     Active Substance: ESOMEPRAZOLE SODIUM
     Indication: Gastrointestinal disorder prophylaxis
     Dosage: 40 MG, QD (DAILY)
     Route: 048
     Dates: start: 2015
  11. OXYCONTIN [Concomitant]
     Active Substance: OXYCODONE HYDROCHLORIDE
     Indication: Pain
     Dosage: 20 MG, BID
     Route: 048
     Dates: start: 2024
  12. EMEND [Concomitant]
     Active Substance: APREPITANT
     Indication: Nausea
     Dosage: 125 MG, QD (DAILY)
     Route: 048
     Dates: start: 20251014
  13. EMEND [Concomitant]
     Active Substance: APREPITANT
     Dosage: 80 MG, QD (DAILY)
     Route: 048
     Dates: start: 20251015
  14. ONDANSETRON [Concomitant]
     Active Substance: ONDANSETRON
     Indication: Nausea
     Dosage: 8 MG, QD (DAILY)
     Route: 048
     Dates: start: 20251015
  15. PREDNISONE [Concomitant]
     Active Substance: PREDNISONE
     Indication: Nausea
     Dosage: 40 MG, QD (DAILY)
     Route: 048
     Dates: start: 20251015
  16. VOGALENE [Concomitant]
     Active Substance: METOPIMAZINE
     Indication: Nausea
     Dosage: 7.5 MG, BID
     Route: 048
     Dates: start: 20251014
  17. CHOLECALCIFEROL [Concomitant]
     Active Substance: CHOLECALCIFEROL
     Indication: Vitamin D deficiency
     Dosage: 1000 IU, ONCE EVERY 1 MO (MONTHLY)
     Route: 048
     Dates: start: 2020
  18. ACETAMINOPHEN [Concomitant]
     Active Substance: ACETAMINOPHEN
     Indication: Abdominal pain
     Dosage: 1 G, TID
     Route: 048
     Dates: start: 20251108
  19. CYANOCOBALAMIN [Concomitant]
     Active Substance: CYANOCOBALAMIN
     Indication: Vitamin B12 deficiency
     Dosage: 1000 UG, ONCE EVERY 1 WK
     Route: 048
     Dates: start: 20251108
  20. FOLIC ACID [Concomitant]
     Active Substance: FOLIC ACID
     Indication: Vitamin B complex deficiency
     Dosage: 5 MG, QD (DAILY)
     Route: 048
     Dates: start: 20251108
  21. PHLOROGLUCINOL [Concomitant]
     Active Substance: PHLOROGLUCINOL
     Indication: Abdominal pain
     Dosage: 80 MG, TID
     Route: 048
     Dates: start: 20251108

REACTIONS (1)
  - Colitis [Recovered/Resolved]

NARRATIVE: CASE EVENT DATE: 20251108
